FAERS Safety Report 22528320 (Version 1)
Quarter: 2023Q2

REPORT INFORMATION
  Report Type: Spontaneous
  Country: RU (occurrence: RU)
  Receive Date: 20230607
  Receipt Date: 20230607
  Transmission Date: 20230721
  Serious: Yes (Other)
  Sender: FDA-Public Use
  Company Number: RU-ABBVIE-5279305

PATIENT
  Age: 9 Year
  Weight: 29 kg

DRUGS (4)
  1. LOPINAVIR\RITONAVIR [Suspect]
     Active Substance: LOPINAVIR\RITONAVIR
     Indication: HIV infection
     Route: 048
  2. LOPINAVIR\RITONAVIR [Suspect]
     Active Substance: LOPINAVIR\RITONAVIR
     Indication: HIV infection
     Dosage: FORM STRENGTH: 250 MILLIGRAM
     Route: 048
     Dates: start: 20101012, end: 20190926
  3. LAMIVUDINE [Concomitant]
     Active Substance: LAMIVUDINE
     Indication: HIV infection
     Route: 048
     Dates: end: 20190926
  4. ABACAVIR [Concomitant]
     Active Substance: ABACAVIR
     Indication: HIV infection
     Route: 048
     Dates: end: 20190926

REACTIONS (1)
  - Dyslipidaemia [Recovered/Resolved]

NARRATIVE: CASE EVENT DATE: 20130726
